FAERS Safety Report 7291897-9 (Version None)
Quarter: 2011Q1

REPORT INFORMATION
  Report Type: 
  Country: None (occurrence: None)
  Receive Date: 20110214
  Receipt Date: 20110209
  Transmission Date: 20110831
  Serious: Yes (Other)
  Sender: FDA-Public Use
  Company Number: JP-ABBOTT-11P-087-0704662-00

PATIENT
  Age: 31 Year
  Sex: Female

DRUGS (1)
  1. CLARITH TABLETS [Suspect]
     Indication: PRODUCT USED FOR UNKNOWN INDICATION
     Dates: start: 20110202

REACTIONS (5)
  - DYSPNOEA [None]
  - RASH GENERALISED [None]
  - PRURITUS [None]
  - ANAPHYLACTOID REACTION [None]
  - ABDOMINAL PAIN UPPER [None]
